FAERS Safety Report 16337195 (Version 1)
Quarter: 2019Q2

REPORT INFORMATION
  Report Type: Spontaneous
  Country: US (occurrence: US)
  Receive Date: 20190520
  Receipt Date: 20190520
  Transmission Date: 20190711
  Serious: Yes (Other)
  Sender: FDA-Public Use
  Company Number: None

PATIENT
  Age: 37 Year
  Sex: Male
  Weight: 98.55 kg

DRUGS (3)
  1. KRYSTEXXA [Concomitant]
     Active Substance: PEGLOTICASE
     Dates: start: 20190518, end: 20190518
  2. KRYSTEXXA [Suspect]
     Active Substance: PEGLOTICASE
  3. KRYSTEXXA [Concomitant]
     Active Substance: PEGLOTICASE
     Dates: start: 20190504, end: 20190504

REACTIONS (5)
  - Chest discomfort [None]
  - Vomiting [None]
  - Nausea [None]
  - Dizziness [None]
  - Unresponsive to stimuli [None]

NARRATIVE: CASE EVENT DATE: 20190518
